FAERS Safety Report 15938339 (Version 1)
Quarter: 2019Q1

REPORT INFORMATION
  Report Type: Spontaneous
  Country: US (occurrence: US)
  Receive Date: 20190208
  Receipt Date: 20190208
  Transmission Date: 20190417
  Serious: No
  Sender: FDA-Public Use
  Company Number: US-ROCHE-2209604

PATIENT
  Age: 60 Year
  Sex: Male

DRUGS (11)
  1. FENOFIBRATE. [Concomitant]
     Active Substance: FENOFIBRATE
     Dosage: FENOFIBRATE ALLERGY RLF 50 MCG SPR MCG/ACTAUTION 2 SPRAY EACH NOIRTILS DAILY AS NEEDED
     Route: 065
  2. TYLENOL ARTHRITIS PAIN [Concomitant]
     Active Substance: ACETAMINOPHEN
     Dosage: TYLENOL ARTHRITIS ER 850 MG 2 TABLET DAILY AND
     Route: 065
  3. PRILOSEC [Concomitant]
     Active Substance: OMEPRAZOLE MAGNESIUM
     Dosage: PRILOSEC DR 20 MG CAPSULE DAILY,
     Route: 065
  4. PROAIR HFA [Concomitant]
     Active Substance: ALBUTEROL SULFATE
     Dosage: PROAIR HFA 90 MCG INHALER MCG/ACTUATION INHALE 2 BY MOUTH EVERY 4-6 HOURS,
     Route: 065
  5. XOLAIR [Suspect]
     Active Substance: OMALIZUMAB
     Indication: CHRONIC SPONTANEOUS URTICARIA
     Dosage: RECEIVED TWO DOSES; ONGOING: NO
     Route: 065
  6. BREO ELLIPTA [Concomitant]
     Active Substance: FLUTICASONE FUROATE\VILANTEROL TRIFENATATE
     Dosage: BREO ELLIPTA 200-25 MCG INHALTION MCG/DOSE 1 PUFF BY MOUTH DAILY
     Route: 048
  7. GABAPENTIN. [Concomitant]
     Active Substance: GABAPENTIN
     Dosage: GABAPENTIN 300 MG CAPSULE 3 DAILY
     Route: 065
  8. IBUPROFEN. [Concomitant]
     Active Substance: IBUPROFEN
     Dosage: IBUPROFEN 600 MG TABLET 3 TABLET DAILY
     Route: 065
  9. PRAVASTATIN. [Concomitant]
     Active Substance: PRAVASTATIN
     Dosage: PRAVASTATIN SODIUM 20 MG CAPSULE DAILY
     Route: 065
  10. AUVI-Q [Concomitant]
     Active Substance: EPINEPHRINE
     Dosage: AUVI-Q 0.8 MG AUTO INJECTOR MG /0.3 ML (USE AS DIRECTED FOR SEVERE REACTION),
     Route: 065
  11. XYZAL [Concomitant]
     Active Substance: LEVOCETIRIZINE DIHYDROCHLORIDE
     Dosage: XYZAL 5 MG TABLET DAILY
     Route: 065

REACTIONS (3)
  - Eczema [Recovered/Resolved]
  - Urticaria chronic [Unknown]
  - Rash [Recovered/Resolved]

NARRATIVE: CASE EVENT DATE: 20180902
